FAERS Safety Report 11222752 (Version 2)
Quarter: 2015Q4

REPORT INFORMATION
  Report Type: Spontaneous
  Country: FR (occurrence: FR)
  Receive Date: 20150626
  Receipt Date: 20151221
  Transmission Date: 20160304
  Serious: Yes (Death, Life-Threatening, Hospitalization)
  Sender: FDA-Public Use
  Company Number: FR-009507513-1506FRA013183

PATIENT
  Age: 89 Year
  Sex: Male

DRUGS (10)
  1. NOCTAMIDE [Concomitant]
     Active Substance: LORMETAZEPAM
     Dosage: UNK
  2. CASODEX [Concomitant]
     Active Substance: BICALUTAMIDE
     Dosage: UNK
  3. ALGESAL (DIETHYLAMINE SALICYLATE (+) MYRTECAINE) [Interacting]
     Active Substance: DIETHYLAMINE SALICYLATE\MYRTECAINE
     Indication: PAIN
     Dosage: UNKNOWN
     Route: 003
     Dates: start: 20150512, end: 20150526
  4. OLMESARTAN MEDOXOMIL. [Interacting]
     Active Substance: OLMESARTAN MEDOXOMIL
     Indication: HYPERTENSION
     Dosage: UNK
     Route: 048
     Dates: start: 201406
  5. COVERSYL (PERINDOPRIL ARGININE) [Interacting]
     Active Substance: PERINDOPRIL
     Indication: HYPERTENSION
     Dosage: UNKNOWN
     Route: 048
     Dates: start: 2013
  6. LAROXYL [Concomitant]
     Active Substance: AMITRIPTYLINE
     Dosage: UNK
  7. XATRAL [Concomitant]
     Active Substance: ALFUZOSIN
     Dosage: UNK
  8. DEPAKINE [Concomitant]
     Active Substance: VALPROATE SODIUM
     Dosage: UNK
  9. KARDEGIC [Concomitant]
     Active Substance: ASPIRIN LYSINE
     Dosage: UNK
  10. FUROSEMIDE. [Suspect]
     Active Substance: FUROSEMIDE
     Indication: HYPERTENSION
     Dosage: UNK
     Route: 048

REACTIONS (6)
  - Hyperkalaemia [Recovered/Resolved]
  - Acute kidney injury [Recovering/Resolving]
  - Death [Fatal]
  - Ischaemic stroke [Unknown]
  - Atrioventricular block complete [Unknown]
  - Drug interaction [Unknown]

NARRATIVE: CASE EVENT DATE: 201406
